FAERS Safety Report 14838732 (Version 1)
Quarter: 2018Q2

REPORT INFORMATION
  Report Type: Spontaneous
  Country: US (occurrence: US)
  Receive Date: 20180420
  Receipt Date: 20180420
  Transmission Date: 20180711
  Serious: Yes (Hospitalization)
  Sender: FDA-Public Use
  Company Number: None

PATIENT
  Age: 78 Year
  Sex: Male
  Weight: 86 kg

DRUGS (3)
  1. DEXAMETHASONE. [Suspect]
     Active Substance: DEXAMETHASONE
     Dates: end: 20180410
  2. VELCADE [Suspect]
     Active Substance: BORTEZOMIB
     Dates: end: 20180409
  3. LENALIDOMIDE (CC-5013) [Suspect]
     Active Substance: LENALIDOMIDE
     Dates: end: 20180413

REACTIONS (4)
  - Blood pressure decreased [None]
  - Cerebral ischaemia [None]
  - Syncope [None]
  - Carotid artery stenosis [None]

NARRATIVE: CASE EVENT DATE: 20180413
